FAERS Safety Report 22910215 (Version 3)
Quarter: 2023Q4

REPORT INFORMATION
  Report Type: Spontaneous
  Country: US (occurrence: US)
  Receive Date: 20230906
  Receipt Date: 20231030
  Transmission Date: 20240109
  Serious: No
  Sender: FDA-Public Use
  Company Number: US-SA-SAC20230904000948

PATIENT
  Age: 54 Year
  Sex: Female

DRUGS (2)
  1. KEVZARA [Suspect]
     Active Substance: SARILUMAB
     Indication: Rheumatoid arthritis
     Dosage: 200 MG, QOW
     Route: 058
     Dates: start: 202306, end: 2023
  2. QULIPTA [Concomitant]
     Active Substance: ATOGEPANT
     Dosage: UNK
     Dates: start: 2023

REACTIONS (2)
  - Hypersensitivity [Unknown]
  - Infection [Unknown]

NARRATIVE: CASE EVENT DATE: 20230101
